FAERS Safety Report 9286050 (Version 1)
Quarter: 2013Q2

REPORT INFORMATION
  Report Type: Spontaneous
  Country: US (occurrence: None)
  Receive Date: 20130507
  Receipt Date: 20130507
  Transmission Date: 20140414
  Serious: Yes (Other)
  Sender: FDA-Public Use
  Company Number: 1159569

PATIENT
  Age: 12 Year
  Sex: Female

DRUGS (1)
  1. NIX [Suspect]
     Indication: LICE INFESTATION
     Route: 061
     Dates: start: 20130429

REACTIONS (1)
  - Convulsion [None]
